FAERS Safety Report 4417719-9 (Version None)
Quarter: 2004Q3

REPORT INFORMATION
  Report Type: 
  Country: None (occurrence: None)
  Receive Date: 20040803
  Receipt Date: 20040723
  Transmission Date: 20050211
  Serious: Yes (Death, Hospitalization, Other)
  Sender: FDA-Public Use
  Company Number: KII-2004-0012579

PATIENT
  Age: 44 Year
  Sex: Female

DRUGS (9)
  1. OXYCONTIN [Suspect]
     Indication: DRUG USE FOR UNKNOWN INDICATION
     Dosage: ORAL
  2. BENZODIAZEPINE DERIVATIVES () [Suspect]
     Indication: DRUG USE FOR UNKNOWN INDICATION
     Dosage: ORAL
     Route: 048
  3. METHADONE HCL [Suspect]
     Indication: DRUG USE FOR UNKNOWN INDICATION
     Dosage: ORAL
     Route: 048
  4. ACETAMINOPHEN [Suspect]
     Indication: DRUG USE FOR UNKNOWN INDICATION
     Dosage: ORAL
     Route: 048
  5. ANTIEPILEPTICS () [Suspect]
     Indication: DRUG USE FOR UNKNOWN INDICATION
     Dosage: ORAL
     Route: 048
  6. ACETYLSALICYLIC ACID SRT [Suspect]
     Indication: DRUG USE FOR UNKNOWN INDICATION
  7. ETHANOL (ETHANOL) [Suspect]
     Indication: DRUG USE FOR UNKNOWN INDICATION
  8. WARFARIN (WARFARIN) [Concomitant]
  9. FUROSEMIDE [Concomitant]

REACTIONS (28)
  - AGITATION [None]
  - ALANINE AMINOTRANSFERASE INCREASED [None]
  - ALCOHOL POISONING [None]
  - ASPARTATE AMINOTRANSFERASE INCREASED [None]
  - ASPIRATION [None]
  - BLOOD BICARBONATE DECREASED [None]
  - BLOOD CALCIUM DECREASED [None]
  - BLOOD CHLORIDE INCREASED [None]
  - BLOOD CREATININE INCREASED [None]
  - BLOOD LACTIC ACID INCREASED [None]
  - BLOOD POTASSIUM DECREASED [None]
  - BLOOD UREA INCREASED [None]
  - COMA [None]
  - DIALYSIS [None]
  - DIARRHOEA [None]
  - HEART RATE INCREASED [None]
  - HYPOTENSION [None]
  - INCREASED BRONCHIAL SECRETION [None]
  - INJURY [None]
  - INTENTIONAL OVERDOSE [None]
  - LIVER DISORDER [None]
  - METABOLIC ACIDOSIS [None]
  - MIOSIS [None]
  - MULTIPLE DRUG OVERDOSE [None]
  - MYOCARDIAL INFARCTION [None]
  - OLIGURIA [None]
  - OXYGEN SATURATION DECREASED [None]
  - RESPIRATORY RATE INCREASED [None]
